FAERS Safety Report 7216307-9 (Version None)
Quarter: 2011Q1

REPORT INFORMATION
  Report Type: 
  Country: None (occurrence: None)
  Receive Date: 20110107
  Receipt Date: 20101208
  Transmission Date: 20110831
  Serious: No
  Sender: FDA-Public Use
  Company Number: US-JNJFOC-20101203824

PATIENT
  Age: 45 Year
  Sex: Male
  Weight: 96.62 kg

DRUGS (3)
  1. SIMVASTATIN [Concomitant]
  2. INVEGA SUSTENNA [Suspect]
     Indication: SCHIZOAFFECTIVE DISORDER
     Route: 030
  3. ZOLOFT [Concomitant]

REACTIONS (2)
  - FIBRIN D DIMER INCREASED [None]
  - BRONCHITIS [None]
